FAERS Safety Report 12174900 (Version 1)
Quarter: 2016Q1

REPORT INFORMATION
  Report Type: Spontaneous
  Country: US (occurrence: US)
  Receive Date: 20160314
  Receipt Date: 20160314
  Transmission Date: 20160526
  Serious: No
  Sender: FDA-Public Use
  Company Number: US-SHIRE-US201603006

PATIENT
  Age: 9 Year
  Sex: Female

DRUGS (1)
  1. LIALDA [Suspect]
     Active Substance: MESALAMINE
     Indication: COLITIS ULCERATIVE
     Dosage: 2.4 G (TWO 1.2 G), OTHER (AT A TIME)
     Route: 048

REACTIONS (3)
  - Inflammation [Unknown]
  - Drug administered to patient of inappropriate age [Unknown]
  - Product quality issue [Unknown]
